FAERS Safety Report 9279381 (Version 1)
Quarter: 2013Q2

REPORT INFORMATION
  Report Type: Spontaneous
  Country: US (occurrence: US)
  Receive Date: 20130508
  Receipt Date: 20130508
  Transmission Date: 20140414
  Serious: Yes (Death)
  Sender: FDA-Public Use
  Company Number: US-GILEAD-2013-0073811

PATIENT
  Sex: Female

DRUGS (3)
  1. LETAIRIS [Suspect]
     Indication: PULMONARY ARTERIAL HYPERTENSION
     Dosage: 5 MG, QD
     Dates: start: 20100426, end: 20130401
  2. LETAIRIS [Suspect]
     Dosage: 5 MG, UNK
     Dates: start: 20100423
  3. LETAIRIS [Suspect]
     Dosage: 5 MG, QD
     Dates: start: 20100426, end: 20130417

REACTIONS (2)
  - Disease progression [Fatal]
  - General physical health deterioration [Unknown]
